FAERS Safety Report 6421787-2 (Version None)
Quarter: 2009Q4

REPORT INFORMATION
  Report Type: 
  Country: None (occurrence: None)
  Receive Date: 20091030
  Receipt Date: 20091026
  Transmission Date: 20100525
  Serious: Yes (Death)
  Sender: FDA-Public Use
  Company Number: A0813399A

PATIENT
  Age: 11 Year
  Sex: Male

DRUGS (2)
  1. PAXIL [Suspect]
     Dosage: 20MG UNKNOWN
     Route: 048
     Dates: start: 20071001
  2. NO CONCURRENT MEDICATION [Concomitant]

REACTIONS (1)
  - COMPLETED SUICIDE [None]
